FAERS Safety Report 24921989 (Version 2)
Quarter: 2025Q1

REPORT INFORMATION
  Report Type: Spontaneous
  Country: TR (occurrence: TR)
  Receive Date: 20250204
  Receipt Date: 20250225
  Transmission Date: 20250409
  Serious: Yes (Death, Other)
  Sender: RANBAXY
  Company Number: TR-SUN PHARMACEUTICAL INDUSTRIES LTD-2025R1-492007

PATIENT
  Age: 58 Year
  Sex: Male

DRUGS (3)
  1. CEFTRIAXONE [Suspect]
     Active Substance: CEFTRIAXONE
     Indication: Oesophageal squamous cell carcinoma
     Route: 065
  2. CLINDAMYCIN [Suspect]
     Active Substance: CLINDAMYCIN
     Indication: Oesophageal squamous cell carcinoma
     Route: 065
  3. CIPROFLOXACIN [Suspect]
     Active Substance: CIPROFLOXACIN
     Indication: Oesophageal squamous cell carcinoma
     Route: 065

REACTIONS (1)
  - Disseminated intravascular coagulation [Fatal]
